FAERS Safety Report 8010249-7 (Version None)
Quarter: 2011Q4

REPORT INFORMATION
  Report Type: 
  Country: None (occurrence: None)
  Receive Date: 20111123
  Receipt Date: 20111025
  Transmission Date: 20120403
  Serious: No
  Sender: FDA-Public Use
  Company Number: 334215

PATIENT
  Age: 45 Year
  Sex: Female

DRUGS (1)
  1. VICTOZA [Suspect]
     Indication: TYPE 2 DIABETES MELLITUS
     Dosage: 0.6 MG, QD, SUBCUTANEOUS 1.2 MG, UNK, SUBCUTANEOUS
     Route: 058
     Dates: start: 20110601

REACTIONS (3)
  - DRY MOUTH [None]
  - INJECTION SITE ERYTHEMA [None]
  - NAUSEA [None]
